FAERS Safety Report 21962994 (Version 2)
Quarter: 2023Q1

REPORT INFORMATION
  Report Type: Spontaneous
  Country: US (occurrence: US)
  Receive Date: 20230207
  Receipt Date: 20230221
  Transmission Date: 20230417
  Serious: No
  Sender: FDA-Public Use
  Company Number: US-BRISTOL-MYERS SQUIBB COMPANY-2023-016693

PATIENT
  Age: 82 Year
  Sex: Female
  Weight: 63.5 kg

DRUGS (3)
  1. SOTYKTU [Suspect]
     Active Substance: DEUCRAVACITINIB
     Indication: Psoriasis
     Dosage: DOSE : 6MG;     FREQ : DAILY
     Route: 048
     Dates: start: 20230117
  2. NIFEDIPINE [Concomitant]
     Active Substance: NIFEDIPINE
     Indication: Product used for unknown indication
  3. BIO IRBESARTAN [Concomitant]
     Indication: Product used for unknown indication

REACTIONS (5)
  - Nasopharyngitis [Unknown]
  - Sneezing [Unknown]
  - Chills [Unknown]
  - Nasal obstruction [Unknown]
  - Oral herpes [Unknown]

NARRATIVE: CASE EVENT DATE: 20230119
